FAERS Safety Report 5408873-0 (Version None)
Quarter: 2007Q3

REPORT INFORMATION
  Report Type: 
  Country: None (occurrence: None)
  Receive Date: 20070808
  Receipt Date: 20070806
  Transmission Date: 20080115
  Serious: Yes (Other)
  Sender: FDA-Public Use
  Company Number: US-BOEHRINGER INGELHEIM PHARMACEUTICALS, INC.-2007-BP-03850BP

PATIENT
  Sex: Male
  Weight: 86 kg

DRUGS (11)
  1. SPIRIVA [Suspect]
     Indication: CHRONIC OBSTRUCTIVE PULMONARY DISEASE
     Route: 055
     Dates: start: 20061217, end: 20061220
  2. SPIRIVA [Suspect]
     Indication: EMPHYSEMA
  3. DUONEB [Suspect]
     Indication: CHRONIC OBSTRUCTIVE PULMONARY DISEASE
     Route: 055
     Dates: start: 20061217
  4. DUONEB [Suspect]
     Indication: EMPHYSEMA
  5. ROCEPHIN [Concomitant]
     Dates: start: 20061217, end: 20061221
  6. ASPIRIN [Concomitant]
  7. SIMVASTATIN [Concomitant]
  8. DECADRON [Concomitant]
  9. DIGOXIN [Concomitant]
  10. SYNTHROID [Concomitant]
  11. LASIX [Concomitant]

REACTIONS (3)
  - BRONCHOSPASM [None]
  - DYSPNOEA [None]
  - WHEEZING [None]
